FAERS Safety Report 7409446-0 (Version None)
Quarter: 2011Q2

REPORT INFORMATION
  Report Type: 
  Country: None (occurrence: None)
  Receive Date: 20110412
  Receipt Date: 20110314
  Transmission Date: 20111010
  Serious: Yes (Other)
  Sender: FDA-Public Use
  Company Number: US-BAYER-201034575NA

PATIENT
  Age: 26 Year
  Sex: Female

DRUGS (6)
  1. GLUCOPHAGE [Concomitant]
  2. ALDACTONE [Concomitant]
  3. YASMIN [Suspect]
     Indication: PRODUCT USED FOR UNKNOWN INDICATION
     Route: 048
     Dates: start: 20060701, end: 20080601
  4. OCELLA [Suspect]
     Indication: PRODUCT USED FOR UNKNOWN INDICATION
     Route: 048
     Dates: start: 20080701, end: 20090801
  5. LIPITOR [Concomitant]
  6. PREVACID [Concomitant]

REACTIONS (3)
  - GALLBLADDER INJURY [None]
  - CHOLESTEROSIS [None]
  - CHOLECYSTITIS [None]
